FAERS Safety Report 21719897 (Version 1)
Quarter: 2022Q4

REPORT INFORMATION
  Report Type: Other
  Country: US (occurrence: US)
  Receive Date: 20221213
  Receipt Date: 20221213
  Transmission Date: 20230113
  Serious: Yes (Hospitalization, Other)
  Sender: FDA-Public Use
  Company Number: US-HLS-202104929

PATIENT
  Age: 12 Year
  Sex: Male

DRUGS (3)
  1. CLOZAPINE [Suspect]
     Active Substance: CLOZAPINE
     Dosage: 525 MG TOTAL DAILY
     Route: 065
  2. OLANZAPINE [Concomitant]
     Active Substance: OLANZAPINE
     Indication: Psychotic disorder
     Dosage: 20MG DAILY
     Route: 065
  3. FLUVOXAMINE [Concomitant]
     Active Substance: FLUVOXAMINE
     Dosage: 25MG DAILY
     Route: 065

REACTIONS (6)
  - Constipation [Unknown]
  - Enuresis [Unknown]
  - Fall [Recovered/Resolved]
  - Sedation [Unknown]
  - Orthostatic hypotension [Unknown]
  - Vomiting [Unknown]
